FAERS Safety Report 5095195-3 (Version None)
Quarter: 2006Q3

REPORT INFORMATION
  Report Type: 
  Country: None (occurrence: None)
  Receive Date: 20060901
  Receipt Date: 20060614
  Transmission Date: 20061208
  Serious: Yes (Hospitalization)
  Sender: FDA-Public Use
  Company Number: FR-GLAXOSMITHKLINE-B0427426A

PATIENT
  Age: 88 Year
  Sex: Male

DRUGS (6)
  1. AUGMENTIN [Suspect]
     Dates: start: 20060519, end: 20060519
  2. SERETIDE [Concomitant]
     Dosage: 1PUFF TWICE PER DAY
     Route: 055
  3. ASPEGIC 1000 [Concomitant]
     Route: 048
  4. COMBIVENT [Concomitant]
     Dosage: 4PUFF PER DAY
     Route: 055
  5. SINGULAIR [Concomitant]
     Route: 048
  6. DIGOXIN [Concomitant]
     Indication: ATRIAL FIBRILLATION
     Route: 048

REACTIONS (6)
  - BODY TEMPERATURE INCREASED [None]
  - BRONCHOSPASM [None]
  - CYANOSIS [None]
  - DYSPNOEA [None]
  - RESPIRATORY DISTRESS [None]
  - URTICARIA [None]
